FAERS Safety Report 7332384-9 (Version None)
Quarter: 2011Q1

REPORT INFORMATION
  Report Type: 
  Country: None (occurrence: None)
  Receive Date: 20110304
  Receipt Date: 20110228
  Transmission Date: 20110831
  Serious: Yes (Other)
  Sender: FDA-Public Use
  Company Number: B0702116A

PATIENT
  Age: 49 Year
  Sex: Female

DRUGS (6)
  1. MESALAZINE [Suspect]
     Route: 065
  2. ANXIOLYTIC [Concomitant]
     Route: 065
  3. PAROXETINE HYDROCHLORIDE [Suspect]
     Route: 048
     Dates: end: 20100801
  4. HYPNOTICS [Concomitant]
     Route: 065
  5. ANTI HYPERTENSIVE [Concomitant]
     Route: 065
  6. NON STEROID ANTI INFLAMMATORY DRUG [Concomitant]
     Route: 048

REACTIONS (5)
  - DIARRHOEA [None]
  - ABDOMINAL PAIN [None]
  - COLITIS COLLAGENOUS [None]
  - IRRITABLE BOWEL SYNDROME [None]
  - DRUG ERUPTION [None]
